FAERS Safety Report 13517298 (Version 2)
Quarter: 2017Q2

REPORT INFORMATION
  Report Type: Spontaneous
  Country: DK (occurrence: DK)
  Receive Date: 20170505
  Receipt Date: 20170512
  Transmission Date: 20170830
  Serious: Yes (Death)
  Sender: FDA-Public Use
  Company Number: PHHY2017DK065322

PATIENT
  Age: 62 Year
  Sex: Female

DRUGS (11)
  1. PANAM [Concomitant]
     Indication: PAIN
     Route: 065
  2. PREDNISOLON [Concomitant]
     Active Substance: PREDNISOLONE
     Dosage: UNK
     Dates: start: 20071206
  3. METHOTREXATE (METHOTREXATE SODIUM) [Concomitant]
     Active Substance: METHOTREXATE SODIUM
     Indication: TAKAYASU^S ARTERITIS
     Dosage: UNK
     Route: 065
     Dates: start: 2007
  4. MANDOLGIN [Concomitant]
     Active Substance: TRAMADOL
     Indication: PAIN
     Route: 065
  5. ENBREL [Concomitant]
     Active Substance: ETANERCEPT
     Dosage: UNK
     Dates: start: 20081204
  6. ENBREL [Concomitant]
     Active Substance: ETANERCEPT
     Indication: TAKAYASU^S ARTERITIS
     Dosage: UNK
     Route: 065
     Dates: start: 20081204
  7. CONTALGIN [Concomitant]
     Active Substance: MORPHINE SULFATE
     Indication: PAIN
     Route: 065
  8. PREDNISOLON [Concomitant]
     Active Substance: PREDNISOLONE
     Indication: INFLAMMATION
     Dosage: 37.5 MG, QD
     Route: 065
     Dates: start: 20071206
  9. MERONEM [Concomitant]
     Active Substance: MEROPENEM
     Indication: PRODUCT USED FOR UNKNOWN INDICATION
     Dosage: UNK
     Route: 065
     Dates: start: 20090225
  10. VOLTAREN [Suspect]
     Active Substance: DICLOFENAC SODIUM
     Indication: PAIN
     Dosage: UNK
     Route: 065
     Dates: end: 20130205
  11. OXYNORM [Concomitant]
     Active Substance: OXYCODONE HYDROCHLORIDE
     Indication: PAIN
     Route: 065

REACTIONS (2)
  - Injury [Unknown]
  - Gastric ulcer haemorrhage [Fatal]

NARRATIVE: CASE EVENT DATE: 20130213
